FAERS Safety Report 5837193-5 (Version None)
Quarter: 2008Q3

REPORT INFORMATION
  Report Type: 
  Country: None (occurrence: None)
  Receive Date: 20080807
  Receipt Date: 20080730
  Transmission Date: 20090109
  Serious: Yes (Hospitalization)
  Sender: FDA-Public Use
  Company Number: DE-ABBOTT-08P-062-0460070-00

PATIENT
  Sex: Male
  Weight: 140 kg

DRUGS (3)
  1. RITONAVIR SOFT GELATIN CAPSULES (NOT ADMINISTERED) [Suspect]
     Indication: HIV INFECTION
  2. KALETRA [Suspect]
     Indication: HIV INFECTION
     Route: 048
     Dates: start: 20080606
  3. TRUVADA [Concomitant]
     Indication: HIV INFECTION
     Route: 048
     Dates: start: 20060606

REACTIONS (2)
  - ASTHMA [None]
  - CARDIAC FAILURE [None]
